FAERS Safety Report 4692261-9 (Version None)
Quarter: 2005Q2

REPORT INFORMATION
  Report Type: 
  Country: None (occurrence: None)
  Receive Date: 20050616
  Receipt Date: 20050603
  Transmission Date: 20051028
  Serious: Yes (Other)
  Sender: FDA-Public Use
  Company Number: 2005084492

PATIENT
  Age: 65 Year
  Sex: Female

DRUGS (1)
  1. SULPERAZONE (SULACTAM, CEFOPERAZONE) [Suspect]
     Indication: BRONCHOPNEUMONIA
     Dosage: 3 GRAM (1.5 GRAM, 1 IN 2 D), INTRAVENOUS
     Route: 042
     Dates: start: 20050602, end: 20050602

REACTIONS (3)
  - DYSPNOEA [None]
  - MOVEMENT DISORDER [None]
  - TREMOR [None]
